FAERS Safety Report 12268485 (Version 2)
Quarter: 2016Q2

REPORT INFORMATION
  Report Type: Spontaneous
  Country: US (occurrence: US)
  Receive Date: 20160414
  Receipt Date: 20160418
  Transmission Date: 20160815
  Serious: Yes (Other)
  Sender: FDA-Public Use
  Company Number: US-PFIZER INC-2016200523

PATIENT

DRUGS (1)
  1. TAPAZOLE [Suspect]
     Active Substance: METHIMAZOLE
     Dosage: UNK

REACTIONS (1)
  - Thrombocytopenia [Unknown]
